FAERS Safety Report 19444355 (Version 1)
Quarter: 2021Q2

REPORT INFORMATION
  Report Type: Spontaneous
  Country: US (occurrence: US)
  Receive Date: 20210621
  Receipt Date: 20210621
  Transmission Date: 20210717
  Serious: No
  Sender: FDA-Public Use
  Company Number: US-SA-2021SA196473

PATIENT
  Sex: Female

DRUGS (1)
  1. ENOXAPARIN SODIUM ? WINTHROP [Suspect]
     Active Substance: ENOXAPARIN SODIUM

REACTIONS (1)
  - Product storage error [Unknown]
